FAERS Safety Report 9841604 (Version 1)
Quarter: 2013Q4

REPORT INFORMATION
  Report Type: Spontaneous
  Country: US (occurrence: None)
  Receive Date: 20131219
  Receipt Date: 20131219
  Transmission Date: 20140711
  Serious: Yes (Other)
  Sender: FDA-Public Use
  Company Number: 163-20785-12112832

PATIENT
  Age: 81 Year
  Sex: Female
  Weight: 108.86 kg

DRUGS (11)
  1. THALOMID [Suspect]
     Indication: LEIOMYOSARCOMA
     Dosage: 50 MG, 1 IN 1 D, PO
     Route: 048
     Dates: start: 20120601, end: 20121001
  2. ADVAIR (SERETIDE MITE) [Concomitant]
  3. DIAZEPAM (DIAZEPAM) [Concomitant]
  4. KLOR-CON (POTASSIUM CHLORIDE) [Concomitant]
  5. LEXAPRO (ESCITALOPRAM OXALATE) [Concomitant]
  6. NEXIUM (ESOMEPRAZOLE) [Concomitant]
  7. PROAIR HFA (SALBUTAMOL SULFATE) [Concomitant]
  8. PROCARDIA (NIFEDIPINE) [Concomitant]
  9. PROCHLORPERAZINE (PROCHLORPERAZINE) [Concomitant]
  10. SINGUILAIR (MONTELUKAST SODIUM) [Concomitant]
  11. SYNTHROID (LEVOTHYROXINE SODIUM) [Concomitant]

REACTIONS (1)
  - Metastases to liver [None]
